FAERS Safety Report 10575786 (Version 2)
Quarter: 2014Q4

REPORT INFORMATION
  Report Type: Spontaneous
  Country: US (occurrence: US)
  Receive Date: 20141111
  Receipt Date: 20141205
  Transmission Date: 20150529
  Serious: No
  Sender: FDA-Public Use
  Company Number: US-ASTRAZENECA-2014SE82813

PATIENT
  Age: 79 Year
  Sex: Male
  Weight: 77.1 kg

DRUGS (9)
  1. PLAVIX [Concomitant]
     Active Substance: CLOPIDOGREL BISULFATE
     Indication: ANTICOAGULANT THERAPY
     Route: 048
     Dates: start: 2006
  2. ASPIRIN. [Concomitant]
     Active Substance: ASPIRIN
     Indication: CARDIAC DISORDER
     Route: 048
     Dates: start: 2005
  3. VALSARTAN. [Concomitant]
     Active Substance: VALSARTAN
     Indication: BLOOD PRESSURE ABNORMAL
     Route: 048
     Dates: start: 2005
  4. NEURONTIN [Concomitant]
     Active Substance: GABAPENTIN
     Indication: BACK DISORDER
     Route: 048
     Dates: start: 2012
  5. L-CARNITINE [Concomitant]
     Active Substance: CARNITINE
     Indication: CARDIAC DISORDER
     Route: 048
     Dates: start: 2009
  6. CRESTOR [Suspect]
     Active Substance: ROSUVASTATIN CALCIUM
     Indication: BLOOD CHOLESTEROL INCREASED
     Route: 048
     Dates: start: 2013
  7. TOPROL XL [Suspect]
     Active Substance: METOPROLOL SUCCINATE
     Indication: SURGERY
     Route: 048
     Dates: start: 2005
  8. COQ10 [Concomitant]
     Active Substance: UBIDECARENONE
     Indication: PRODUCT USED FOR UNKNOWN INDICATION
     Route: 048
     Dates: start: 2009
  9. ATENOLOL. [Suspect]
     Active Substance: ATENOLOL
     Indication: BLOOD PRESSURE MANAGEMENT
     Route: 048

REACTIONS (3)
  - Urine analysis abnormal [Not Recovered/Not Resolved]
  - Muscle disorder [Unknown]
  - Back disorder [Unknown]

NARRATIVE: CASE EVENT DATE: 2012
